FAERS Safety Report 20743871 (Version 1)
Quarter: 2022Q2

REPORT INFORMATION
  Report Type: Spontaneous
  Country: AR (occurrence: AR)
  Receive Date: 20220425
  Receipt Date: 20220425
  Transmission Date: 20220721
  Serious: Yes (Other)
  Sender: FDA-Public Use
  Company Number: AR-PFIZER INC-202200566282

PATIENT
  Age: 57 Year
  Sex: Female

DRUGS (3)
  1. AROMASIN [Suspect]
     Active Substance: EXEMESTANE
     Indication: Breast cancer metastatic
     Dosage: 25 MG, DAILY
     Dates: start: 20220128
  2. AFINITOR [Concomitant]
     Active Substance: EVEROLIMUS
     Dosage: 5 MG
     Dates: start: 20220411
  3. AFINITOR [Concomitant]
     Active Substance: EVEROLIMUS
     Dosage: 10 MG

REACTIONS (3)
  - Influenza [Not Recovered/Not Resolved]
  - Nasopharyngitis [Not Recovered/Not Resolved]
  - Malaise [Unknown]
